FAERS Safety Report 4384056-0 (Version None)
Quarter: 2004Q2

REPORT INFORMATION
  Report Type: 
  Country: None (occurrence: None)
  Receive Date: 20040621
  Receipt Date: 20040614
  Transmission Date: 20050107
  Serious: Yes (Death)
  Sender: FDA-Public Use
  Company Number: KII-2001-0001382

PATIENT
  Age: 34 Year
  Sex: Female

DRUGS (1)
  1. MS CONTIN [Suspect]
     Dosage: 30 MG BID

REACTIONS (2)
  - DRUG INEFFECTIVE [None]
  - FAECALOMA [None]
